FAERS Safety Report 5092097-3 (Version None)
Quarter: 2006Q3

REPORT INFORMATION
  Report Type: 
  Country: None (occurrence: None)
  Receive Date: 20060829
  Receipt Date: 20060822
  Transmission Date: 20061208
  Serious: Yes (Hospitalization)
  Sender: FDA-Public Use
  Company Number: BR-BOEHRINGER INGELHEIM PHARMACEUTICALS, INC.-2006-BP-09728BR

PATIENT
  Age: 51 Year
  Sex: Male

DRUGS (2)
  1. MICARDIS HCT [Suspect]
     Indication: HYPERTENSION
     Route: 048
     Dates: start: 20040101
  2. LORAX [Concomitant]
     Indication: ANXIETY

REACTIONS (2)
  - INFARCTION [None]
  - THERAPEUTIC RESPONSE DECREASED [None]
